FAERS Safety Report 25851626 (Version 1)
Quarter: 2025Q3

REPORT INFORMATION
  Report Type: Spontaneous
  Country: US (occurrence: US)
  Receive Date: 20250926
  Receipt Date: 20250926
  Transmission Date: 20251020
  Serious: Yes (Hospitalization, Other)
  Sender: RANBAXY
  Company Number: US-SUN PHARMACEUTICAL INDUSTRIES INC-2025R1-527584

PATIENT
  Sex: Female

DRUGS (1)
  1. BACTRIM [Suspect]
     Active Substance: SULFAMETHOXAZOLE\TRIMETHOPRIM
     Indication: Infection
     Route: 065

REACTIONS (22)
  - Bacteraemia [Unknown]
  - Pyrexia [Unknown]
  - Oedema peripheral [Unknown]
  - Mental status changes [Unknown]
  - Hypophosphataemia [Unknown]
  - Infection [Unknown]
  - Acute kidney injury [Unknown]
  - Drug ineffective [Unknown]
  - Drug hypersensitivity [Unknown]
  - Atrial fibrillation [Unknown]
  - Organ failure [Unknown]
  - Sepsis [Unknown]
  - Decreased appetite [Unknown]
  - Nausea [Unknown]
  - Arthralgia [Unknown]
  - Muscular weakness [Unknown]
  - Rash [Unknown]
  - Dementia [Unknown]
  - Cognitive disorder [Unknown]
  - Bedridden [Unknown]
  - Disability [Unknown]
  - Skin discolouration [Unknown]

NARRATIVE: CASE EVENT DATE: 20230911
